FAERS Safety Report 4606951-7 (Version None)
Quarter: 2005Q1

REPORT INFORMATION
  Report Type: 
  Country: None (occurrence: None)
  Receive Date: 20050309
  Receipt Date: 20050302
  Transmission Date: 20050727
  Serious: Yes (Other)
  Sender: FDA-Public Use
  Company Number: 2005039791

PATIENT
  Age: 72 Year
  Sex: Female

DRUGS (5)
  1. LIPITOR [Suspect]
     Indication: HYPERLIPIDAEMIA
     Dosage: 20 MG (1 D), ORAL
     Route: 048
     Dates: start: 20041215, end: 20041215
  2. AMLODIPINE BESYLATE [Concomitant]
  3. OXYGEN (OXYGEN) [Concomitant]
  4. FEXOFENADINE HCL [Concomitant]
  5. COMBIVENT [Concomitant]

REACTIONS (1)
  - MYALGIA [None]
